FAERS Safety Report 14785714 (Version 1)
Quarter: 2018Q2

REPORT INFORMATION
  Report Type: Report from Study
  Country: US (occurrence: US)
  Receive Date: 20180420
  Receipt Date: 20180420
  Transmission Date: 20180711
  Serious: Yes (Other)
  Sender: FDA-Public Use
  Company Number: US-ASTRAZENECA-2017SE02520

PATIENT
  Age: 931 Month
  Sex: Female
  Weight: 72.6 kg

DRUGS (7)
  1. GABAPENTIN. [Concomitant]
     Active Substance: GABAPENTIN
     Dosage: 300.0MG UNKNOWN
  2. NABUMETONE. [Concomitant]
     Active Substance: NABUMETONE
     Dosage: 750.0MG UNKNOWN
  3. IBRANCE [Suspect]
     Active Substance: PALBOCICLIB
     Dosage: 125 MG DAILY 21 DAYS AND 7 DAYS OFF.
     Route: 048
  4. PANTOPRAZOLE [Concomitant]
     Active Substance: PANTOPRAZOLE
     Dosage: 40.0MG UNKNOWN
  5. DIOVAN HCT [Concomitant]
     Active Substance: HYDROCHLOROTHIAZIDE\VALSARTAN
     Dosage: 80-12.5 MG, UNKNOWN
  6. CAPECITABINE. [Concomitant]
     Active Substance: CAPECITABINE
  7. FASLODEX [Suspect]
     Active Substance: FULVESTRANT
     Indication: BREAST CANCER FEMALE
     Route: 030
     Dates: start: 20170109

REACTIONS (12)
  - Renal mass [Unknown]
  - Malignant neoplasm progression [Unknown]
  - Hepatic cyst [Unknown]
  - Metastases to lung [Unknown]
  - Hepatic mass [Unknown]
  - Hepatic fibrosis [Unknown]
  - Metastases to liver [Unknown]
  - Osteoporosis [Unknown]
  - Intestinal mass [Unknown]
  - Cerebrovascular accident [Unknown]
  - Malignant peritoneal neoplasm [Unknown]
  - Cholestasis [Unknown]

NARRATIVE: CASE EVENT DATE: 201607
